FAERS Safety Report 20659487 (Version 1)
Quarter: 2022Q1

REPORT INFORMATION
  Report Type: Spontaneous
  Country: HR (occurrence: HR)
  Receive Date: 20220331
  Receipt Date: 20220331
  Transmission Date: 20220423
  Serious: Yes (Other)
  Sender: FDA-Public Use
  Company Number: None

PATIENT
  Sex: Female

DRUGS (2)
  1. XANAX [Suspect]
     Active Substance: ALPRAZOLAM
     Dosage: 1.5 MG, 1X/DAY
     Route: 048
     Dates: start: 20211022, end: 20211022
  2. NEBIVOLOL [Suspect]
     Active Substance: NEBIVOLOL
     Dosage: 10 MG, 1X/DAY
     Route: 048
     Dates: start: 20211022, end: 20211022

REACTIONS (2)
  - Slow speech [Unknown]
  - Suicide attempt [Unknown]

NARRATIVE: CASE EVENT DATE: 20211022
